FAERS Safety Report 8209633-8 (Version None)
Quarter: 2012Q1

REPORT INFORMATION
  Report Type: 
  Country: None (occurrence: None)
  Receive Date: 20120314
  Receipt Date: 20120229
  Transmission Date: 20120608
  Serious: Yes (Hospitalization)
  Sender: FDA-Public Use
  Company Number: DE-CELGENEUS-062-21660-11110183

PATIENT
  Age: 66 Year
  Sex: Female
  Weight: 68 kg

DRUGS (4)
  1. SIMVASTATIN [Concomitant]
     Dosage: 20 MILLIGRAM
     Route: 065
  2. ABRAXANE [Suspect]
     Indication: BREAST CANCER
     Dosage: 179 MILLIGRAM
     Route: 041
     Dates: start: 20110808
  3. XELODA [Suspect]
     Indication: BREAST CANCER
     Dosage: 2500 MILLIGRAM
     Route: 048
     Dates: start: 20110808, end: 20111010
  4. FOSAVANCE [Concomitant]
     Dosage: 70 MILLIGRAM
     Route: 065

REACTIONS (1)
  - HAEMORRHOIDAL HAEMORRHAGE [None]
